FAERS Safety Report 13681096 (Version 1)
Quarter: 2017Q2

REPORT INFORMATION
  Report Type: Spontaneous
  Country: US (occurrence: US)
  Receive Date: 20170622
  Receipt Date: 20170622
  Transmission Date: 20170830
  Serious: Yes (Death)
  Sender: FDA-Public Use
  Company Number: None

PATIENT
  Age: 60 Year
  Sex: Male

DRUGS (16)
  1. METOPROLOL TARTRATE. [Concomitant]
     Active Substance: METOPROLOL TARTRATE
  2. RENVELA [Concomitant]
     Active Substance: SEVELAMER CARBONATE
  3. VITAMIN B COMPLEX [Concomitant]
     Active Substance: CYANOCOBALAMIN\DEXPANTHENOL\NIACINAMIDE\PYRIDOXINE HYDROCHLORIDE\RIBOFLAVIN 5^-PHOSPHATE SODIUM\THIAMINE HYDROCHLORIDE\VITAMIN B COMPLEX
  4. ESCITALOPRAM [Suspect]
     Active Substance: ESCITALOPRAM OXALATE
  5. AMIODARONE [Concomitant]
     Active Substance: AMIODARONE
  6. ASPIRIN. [Concomitant]
     Active Substance: ASPIRIN
  7. BENICAR [Concomitant]
     Active Substance: OLMESARTAN MEDOXOMIL
  8. LEVOCETIRIZI [Concomitant]
  9. PANTOPRAZOLE [Concomitant]
     Active Substance: PANTOPRAZOLE
  10. FLUTICASONE. [Concomitant]
     Active Substance: FLUTICASONE
  11. INLYTA [Suspect]
     Active Substance: AXITINIB
     Indication: RENAL CANCER
     Route: 048
     Dates: start: 20170506
  12. ATORVASTATIN [Concomitant]
     Active Substance: ATORVASTATIN
  13. CLONAZEPAM. [Concomitant]
     Active Substance: CLONAZEPAM
  14. ELIQUIS [Suspect]
     Active Substance: APIXABAN
  15. MIRTAZAPINE. [Concomitant]
     Active Substance: MIRTAZAPINE
  16. HYDRALAZINE [Concomitant]
     Active Substance: HYDRALAZINE HYDROCHLORIDE

REACTIONS (1)
  - Death [None]
